FAERS Safety Report 21859136 (Version 5)
Quarter: 2024Q4

REPORT INFORMATION
  Report Type: Spontaneous
  Country: US (occurrence: US)
  Receive Date: 20230113
  Receipt Date: 20241011
  Transmission Date: 20250114
  Serious: Yes (Death)
  Sender: NOVARTIS
  Company Number: US-002147023-NVSC2023US007965

PATIENT
  Sex: Male
  Weight: 74.6 kg

DRUGS (3)
  1. PLUVICTO [Suspect]
     Active Substance: LUTETIUM LU-177 VIPIVOTIDE TETRAXETAN
     Indication: Hormone-refractory prostate cancer
     Dosage: 200 MCI (EVERY 6 WEEKS)
     Route: 042
     Dates: start: 20221005, end: 20221230
  2. PLUVICTO [Suspect]
     Active Substance: LUTETIUM LU-177 VIPIVOTIDE TETRAXETAN
     Dosage: 200 MCI (EVERY 6 WEEKS)
     Route: 042
     Dates: start: 20221005, end: 20221230
  3. PLUVICTO [Suspect]
     Active Substance: LUTETIUM LU-177 VIPIVOTIDE TETRAXETAN
     Dosage: 200 MCI (EVERY 6 WEEKS)
     Route: 042
     Dates: start: 20221005, end: 20221230

REACTIONS (2)
  - Prostate cancer [Fatal]
  - Ill-defined disorder [Unknown]
